FAERS Safety Report 15363543 (Version 1)
Quarter: 2018Q3

REPORT INFORMATION
  Report Type: Spontaneous
  Country: US (occurrence: US)
  Receive Date: 20180907
  Receipt Date: 20180907
  Transmission Date: 20181010
  Serious: No
  Sender: FDA-Public Use
  Company Number: US-009507513-1809USA001751

PATIENT
  Age: 90 Year
  Sex: Female

DRUGS (2)
  1. DIPROLENE [Suspect]
     Active Substance: BETAMETHASONE DIPROPIONATE
     Indication: ECZEMA
     Dosage: APPLY TO THE AFFECTED AREA AS DIRECTED
     Route: 061
  2. LOVASTATIN. [Concomitant]
     Active Substance: LOVASTATIN
     Dosage: 20 MG, QD

REACTIONS (1)
  - Urine odour abnormal [Recovering/Resolving]
